FAERS Safety Report 13047579 (Version 9)
Quarter: 2017Q3

REPORT INFORMATION
  Report Type: Spontaneous
  Country: CA (occurrence: CA)
  Receive Date: 20161220
  Receipt Date: 20170802
  Transmission Date: 20171127
  Serious: Yes (Hospitalization, Other)
  Sender: FDA-Public Use
  Company Number: CA-CELLTRION HEALTHCARE HUNGARY KFT-2016CA010971

PATIENT

DRUGS (6)
  1. INFLECTRA [Suspect]
     Active Substance: INFLIXIMAB-DYYB
     Dosage: 500 MG, CYCLIC (EVERY 2, 6 WEEKS, THEN EVERY 8 WEEKS FOR 11 MONTHS
     Route: 041
  2. INFLECTRA [Suspect]
     Active Substance: INFLIXIMAB-DYYB
     Dosage: 500 MG, CYCLIC (EVERY 2, 6 WEEKS, THEN EVERY 8 WEEKS FOR 11 MONTHS
     Route: 041
     Dates: end: 20160822
  3. INFLECTRA [Suspect]
     Active Substance: INFLIXIMAB-DYYB
     Dosage: 400 MG, CYCLIC (EVERY 2, 6 WEEKS THEN 6 WEEKS FOR 11 MONTHS)
     Route: 041
  4. NAPROXEN. [Concomitant]
     Active Substance: NAPROXEN
     Dosage: 500 MG, DAILY
     Route: 048
  5. TRAMACET [Concomitant]
     Active Substance: ACETAMINOPHEN\TRAMADOL
     Dosage: 37.5 MG/325MG, 3X/DAY
     Route: 048
  6. INFLECTRA [Suspect]
     Active Substance: INFLIXIMAB-DYYB
     Indication: ANKYLOSING SPONDYLITIS
     Dosage: 500 MG, CYCLIC (EVERY 2, 6 WEEKS, THEN EVERY 8 WEEKS FOR 11 MONTHS
     Route: 041
     Dates: start: 20160630

REACTIONS (16)
  - Condition aggravated [Unknown]
  - Ankylosing spondylitis [Unknown]
  - Pain [Not Recovered/Not Resolved]
  - Pneumothorax [Recovered/Resolved]
  - Drug effect incomplete [Not Recovered/Not Resolved]
  - Lung neoplasm [Unknown]
  - Autoimmune disorder [Unknown]
  - Soft tissue injury [Unknown]
  - Malaise [Not Recovered/Not Resolved]
  - Traumatic lung injury [Unknown]
  - Lower respiratory tract infection [Unknown]
  - Sarcoidosis [Not Recovered/Not Resolved]
  - Post-traumatic neck syndrome [Not Recovered/Not Resolved]
  - Empyema [Recovered/Resolved]
  - Fatigue [Not Recovered/Not Resolved]
  - Body temperature increased [Recovered/Resolved]

NARRATIVE: CASE EVENT DATE: 20160630
